FAERS Safety Report 21307306 (Version 4)
Quarter: 2024Q2

REPORT INFORMATION
  Report Type: Report from Study
  Country: CA (occurrence: CA)
  Receive Date: 20220908
  Receipt Date: 20240625
  Transmission Date: 20240716
  Serious: Yes (Other)
  Sender: FDA-Public Use
  Company Number: CA-TAKEDA-2022TUS061496

PATIENT
  Sex: Female

DRUGS (2)
  1. VEDOLIZUMAB [Suspect]
     Active Substance: VEDOLIZUMAB
     Indication: Colitis ulcerative
     Dosage: 300 MILLIGRAM
     Route: 042
     Dates: start: 20220503
  2. VEDOLIZUMAB [Suspect]
     Active Substance: VEDOLIZUMAB
     Indication: Colitis ulcerative
     Dosage: 108 MILLIGRAM
     Route: 058
     Dates: start: 20220827

REACTIONS (16)
  - Melaena [Unknown]
  - Haematochezia [Unknown]
  - Migraine [Unknown]
  - Anaemia [Unknown]
  - Abnormal faeces [Unknown]
  - Blood sodium decreased [Unknown]
  - Injection site bruising [Unknown]
  - Asthenia [Unknown]
  - Mucous stools [Unknown]
  - Inappropriate schedule of product administration [Unknown]
  - Faeces soft [Unknown]
  - Loss of therapeutic response [Unknown]
  - Urinary tract infection [Unknown]
  - Abdominal pain [Unknown]
  - Fatigue [Unknown]
  - Nausea [Not Recovered/Not Resolved]
